FAERS Safety Report 15852574 (Version 8)
Quarter: 2020Q1

REPORT INFORMATION
  Report Type: Report from Study
  Country: DE (occurrence: DE)
  Receive Date: 20190122
  Receipt Date: 20200320
  Transmission Date: 20200409
  Serious: Yes (Death, Hospitalization, Other)
  Sender: FDA-Public Use
  Company Number: DE-ACTELION-A-CH2019-184959

PATIENT
  Age: 64 Year
  Sex: Male
  Weight: 72 kg

DRUGS (13)
  1. BISOPROLOL [Concomitant]
     Active Substance: BISOPROLOL
     Indication: HYPERTENSION
     Dosage: UNK
     Route: 048
  2. ATORVASTATIN [Concomitant]
     Active Substance: ATORVASTATIN
     Indication: HYPERCHOLESTEROLAEMIA
     Dosage: UNK
     Route: 048
  3. UPTRAVI [Suspect]
     Active Substance: SELEXIPAG
     Indication: PULMONARY ARTERIAL HYPERTENSION
     Dosage: 400 MCG, BID
     Route: 048
     Dates: start: 20190115, end: 201905
  4. FUROSEMIDE. [Concomitant]
     Active Substance: FUROSEMIDE
     Indication: HYPERTENSION
     Dosage: UNK
     Route: 048
  5. VITAMIN D3 CALCIUM [Concomitant]
     Active Substance: CALCIUM\CHOLECALCIFEROL
     Indication: PROPHYLAXIS
     Dosage: UNK
     Route: 048
  6. OPSUMIT [Suspect]
     Active Substance: MACITENTAN
     Indication: PULMONARY ARTERIAL HYPERTENSION
     Dosage: 10 MG, QD
     Route: 048
     Dates: start: 20180713, end: 20191223
  7. XIPAMIDE [Concomitant]
     Active Substance: XIPAMIDE
     Indication: HYPERTENSION
     Dosage: UNK
     Route: 048
  8. TILIDIN [Concomitant]
     Active Substance: NALOXONE HYDROCHLORIDE\TILIDINE HYDROCHLORIDE
     Indication: PAIN PROPHYLAXIS
     Dosage: UNK
     Route: 048
  9. APIXABAN [Concomitant]
     Active Substance: APIXABAN
     Indication: ATRIAL FIBRILLATION
     Dosage: UNK
     Route: 048
     Dates: start: 2017
  10. LEVOTHYROXINE. [Concomitant]
     Active Substance: LEVOTHYROXINE
  11. METAMIZOLE [Concomitant]
     Active Substance: METAMIZOLE
     Indication: PAIN PROPHYLAXIS
     Dosage: UNK
     Route: 048
  12. UPTRAVI [Suspect]
     Active Substance: SELEXIPAG
     Dosage: 600 MCG, QD
     Route: 048
     Dates: start: 201905, end: 20191223
  13. OMEPRAZOLE. [Concomitant]
     Active Substance: OMEPRAZOLE
     Dosage: UNK
     Route: 048

REACTIONS (14)
  - Systemic scleroderma [Recovered/Resolved]
  - Pulmonary fibrosis [Recovered/Resolved with Sequelae]
  - Pulmonary arterial hypertension [Fatal]
  - Concomitant disease progression [Recovered/Resolved]
  - Respiratory failure [Recovered/Resolved with Sequelae]
  - Cardiac failure [Recovered/Resolved]
  - Creatinine renal clearance decreased [Recovered/Resolved with Sequelae]
  - Pleural effusion [Recovered/Resolved with Sequelae]
  - Ascites [Unknown]
  - Acute kidney injury [Recovered/Resolved with Sequelae]
  - Anaemia [Unknown]
  - Aspiration pleural cavity [Recovered/Resolved with Sequelae]
  - Multimorbidity [Fatal]
  - Packed red blood cell transfusion [Recovered/Resolved]

NARRATIVE: CASE EVENT DATE: 201910
